FAERS Safety Report 24853547 (Version 2)
Quarter: 2025Q1

REPORT INFORMATION
  Report Type: Spontaneous
  Country: DE (occurrence: DE)
  Receive Date: 20250117
  Receipt Date: 20250121
  Transmission Date: 20250409
  Serious: Yes (Death, Other)
  Sender: AUROBINDO
  Company Number: DE-SUN PHARMACEUTICAL INDUSTRIES LTD-2024RR-487552

PATIENT
  Age: 72 Year
  Sex: Male

DRUGS (7)
  1. AZACITIDINE [Suspect]
     Active Substance: AZACITIDINE
     Indication: Acute myeloid leukaemia
     Route: 065
  2. VENETOCLAX [Suspect]
     Active Substance: VENETOCLAX
     Indication: Salvage therapy
     Route: 065
  3. CYTARABINE [Suspect]
     Active Substance: CYTARABINE
     Indication: Acute myeloid leukaemia
     Route: 065
  4. MITOXANTRONE [Suspect]
     Active Substance: MITOXANTRONE HYDROCHLORIDE
     Indication: Acute myeloid leukaemia
     Route: 065
  5. GLASDEGIB [Concomitant]
     Active Substance: GLASDEGIB
     Indication: Acute myeloid leukaemia
     Route: 065
  6. GLASDEGIB [Concomitant]
     Active Substance: GLASDEGIB
     Route: 065
  7. CYTARABINE [Concomitant]
     Active Substance: CYTARABINE
     Indication: Acute myeloid leukaemia
     Dosage: UNK UNK, ONCE A DAY (UNK, BID, 1.0 G/M2 ON DAYS 1, 2, AND 3 OF CYCLE; TWO CYCLES OF CONSOLIDATION PH
     Route: 042

REACTIONS (5)
  - Acute myeloid leukaemia refractory [Unknown]
  - Disease progression [Unknown]
  - Chloroma [Unknown]
  - Drug resistance [Fatal]
  - Drug ineffective [Fatal]
